FAERS Safety Report 18629859 (Version 1)
Quarter: 2020Q4

REPORT INFORMATION
  Report Type: Spontaneous
  Country: CN (occurrence: CN)
  Receive Date: 20201217
  Receipt Date: 20201217
  Transmission Date: 20210114
  Serious: Yes (Other)
  Sender: FDA-Public Use
  Company Number: CN-BAYER-2020-277431

PATIENT
  Age: 44 Year
  Sex: Female
  Weight: 60 kg

DRUGS (1)
  1. STIVARGA [Suspect]
     Active Substance: REGORAFENIB
     Indication: TARGETED CANCER THERAPY
     Dosage: 160 MG, QD
     Route: 048
     Dates: start: 20201107

REACTIONS (2)
  - Blood pressure inadequately controlled [Recovered/Resolved]
  - Palpitations [None]

NARRATIVE: CASE EVENT DATE: 20201109
